FAERS Safety Report 9285144 (Version 1)
Quarter: 2013Q2

REPORT INFORMATION
  Report Type: Spontaneous
  Country: US (occurrence: US)
  Receive Date: 20130513
  Receipt Date: 20130513
  Transmission Date: 20140414
  Serious: Yes (Other)
  Sender: FDA-Public Use
  Company Number: US-SANOFI-AVENTIS-2013SA046963

PATIENT
  Age: 62 Year
  Sex: Female

DRUGS (1)
  1. LANTUS [Suspect]
     Indication: TYPE 3 DIABETES MELLITUS

REACTIONS (6)
  - Chronic myeloid leukaemia [Unknown]
  - Weight decreased [Unknown]
  - Micturition urgency [Unknown]
  - Insomnia [Unknown]
  - Discomfort [Unknown]
  - Blood glucose decreased [Recovered/Resolved]
